FAERS Safety Report 9848496 (Version 1)
Quarter: 2014Q1

REPORT INFORMATION
  Report Type: Spontaneous
  Country: US (occurrence: None)
  Receive Date: 20140124
  Receipt Date: 20140124
  Transmission Date: 20141002
  Serious: Yes (Life-Threatening)
  Sender: FDA-Public Use
  Company Number: None

PATIENT
  Age: 58 Year
  Sex: Female
  Weight: 86.4 kg

DRUGS (14)
  1. KETAMINE [Suspect]
     Indication: ENDOTRACHEAL INTUBATION
     Route: 042
     Dates: start: 20131211
  2. INSULIN ASPART [Suspect]
  3. TRAMADOL [Suspect]
  4. ASPIRIN\CAFFEINE [Suspect]
  5. METOPROLOL TARTRATE [Suspect]
  6. OMEPRAZOLE [Suspect]
  7. CYCLOBENZAPRINE [Suspect]
  8. SIMVASTATIN [Suspect]
  9. LEVOTHYROXINE [Suspect]
  10. MECLIZINE [Suspect]
  11. VENLAFAXINE [Suspect]
  12. OMEGA 3 FATTY ACIDS [Suspect]
  13. CETIRIZINE [Suspect]
  14. NONE [Concomitant]

REACTIONS (1)
  - Hypertension [None]
